FAERS Safety Report 17809602 (Version 1)
Quarter: 2020Q2

REPORT INFORMATION
  Report Type: Spontaneous
  Country: US (occurrence: US)
  Receive Date: 20200520
  Receipt Date: 20200520
  Transmission Date: 20200714
  Serious: No
  Sender: FDA-Public Use
  Company Number: US-IBSA PHARMA-TSO-2020-0024

PATIENT
  Sex: Female

DRUGS (2)
  1. SYNTHROID [Suspect]
     Active Substance: LEVOTHYROXINE SODIUM
     Indication: HYPOTHYROIDISM
     Route: 048
     Dates: end: 202001
  2. TIROSINT-SOL [Suspect]
     Active Substance: LEVOTHYROXINE SODIUM
     Indication: HYPOTHYROIDISM
     Dosage: 100MCG/ML
     Route: 048
     Dates: start: 202001

REACTIONS (6)
  - Vision blurred [Unknown]
  - Urticaria [Unknown]
  - Hypersensitivity [Unknown]
  - Asthenia [Unknown]
  - Tremor [Unknown]
  - Hot flush [Unknown]

NARRATIVE: CASE EVENT DATE: 202001
